FAERS Safety Report 7815958-8 (Version None)
Quarter: 2011Q4

REPORT INFORMATION
  Report Type: 
  Country: None (occurrence: None)
  Receive Date: 20111014
  Receipt Date: 20111005
  Transmission Date: 20120403
  Serious: Yes (Hospitalization, Other)
  Sender: FDA-Public Use
  Company Number: US-MERCK-1012USA03781

PATIENT
  Age: 54 Year
  Sex: Female

DRUGS (8)
  1. VITAMINS (UNSPECIFIED) [Concomitant]
     Route: 065
     Dates: start: 19920101
  2. VITAMIN D (UNSPECIFIED) [Concomitant]
     Route: 065
     Dates: start: 19920101
  3. LEXAPRO [Concomitant]
     Route: 065
     Dates: start: 19920101
  4. FOSAMAX PLUS D [Suspect]
     Route: 048
  5. CALCIUM (UNSPECIFIED) [Concomitant]
     Route: 065
     Dates: start: 19920101
  6. FOSAMAX [Suspect]
     Indication: OSTEOPOROSIS
     Route: 048
     Dates: start: 19980401
  7. SYNTHROID [Concomitant]
     Route: 048
     Dates: start: 19920101
  8. PROZAC [Concomitant]
     Route: 065
     Dates: start: 19920101

REACTIONS (17)
  - ANXIETY [None]
  - TOOTH DISORDER [None]
  - HUMERUS FRACTURE [None]
  - DEPRESSION [None]
  - VITAMIN D DEFICIENCY [None]
  - TOOTHACHE [None]
  - OSTEOPENIA [None]
  - TONSILLAR DISORDER [None]
  - TOOTH FRACTURE [None]
  - BONE LOSS [None]
  - OBESITY [None]
  - HYPERSENSITIVITY [None]
  - FEMUR FRACTURE [None]
  - FALL [None]
  - GALLBLADDER DISORDER [None]
  - MIGRAINE [None]
  - RIB FRACTURE [None]
